FAERS Safety Report 10314067 (Version 1)
Quarter: 2014Q3

REPORT INFORMATION
  Report Type: Spontaneous
  Country: DE (occurrence: DE)
  Receive Date: 20140718
  Receipt Date: 20140718
  Transmission Date: 20150326
  Serious: Yes (Hospitalization)
  Sender: FDA-Public Use
  Company Number: DE-TEVA-493795GER

PATIENT
  Age: 58 Year
  Sex: Male
  Weight: 88 kg

DRUGS (3)
  1. OXALIPLATIN-GRY 200 MG [Suspect]
     Active Substance: OXALIPLATIN
     Indication: OESOPHAGEAL ADENOCARCINOMA
     Route: 042
  2. CAPECITABINE [Concomitant]
     Active Substance: CAPECITABINE
     Dosage: 4000 MILLIGRAM DAILY;
     Route: 048
     Dates: start: 20140221, end: 20140306
  3. CAPECITABINE [Concomitant]
     Active Substance: CAPECITABINE
     Dosage: 4000 MILLIGRAM DAILY;
     Route: 048
     Dates: start: 20140404, end: 20140416

REACTIONS (5)
  - Abasia [Recovered/Resolved]
  - Stridor [Recovered/Resolved]
  - Motor dysfunction [Recovered/Resolved]
  - Product quality issue [Unknown]
  - Dyspnoea [Recovered/Resolved]

NARRATIVE: CASE EVENT DATE: 20140404
